FAERS Safety Report 7225803-X (Version None)
Quarter: 2011Q1

REPORT INFORMATION
  Report Type: 
  Country: None (occurrence: None)
  Receive Date: 20110113
  Receipt Date: 20110107
  Transmission Date: 20110831
  Serious: Yes (Hospitalization)
  Sender: FDA-Public Use
  Company Number: FR-AMGEN-FRASP2011000918

PATIENT

DRUGS (5)
  1. CORTANCYL [Concomitant]
     Indication: LUNG CARCINOMA CELL TYPE UNSPECIFIED RECURRENT
     Dosage: 20 MG, UNK
     Dates: end: 20100101
  2. ARANESP [Suspect]
     Indication: BRONCHIAL CARCINOMA
     Dosage: UNK
     Dates: end: 20101101
  3. VEPESID [Concomitant]
  4. CARBOPLATIN [Concomitant]
  5. ORBENINE [Concomitant]

REACTIONS (1)
  - ERYTHRODERMIC PSORIASIS [None]
